FAERS Safety Report 13295826 (Version 2)
Quarter: 2017Q1

REPORT INFORMATION
  Report Type: Report from Study
  Country: US (occurrence: US)
  Receive Date: 20170303
  Receipt Date: 20170320
  Transmission Date: 20170428
  Serious: Yes (Other)
  Sender: FDA-Public Use
  Company Number: US-BAUSCH-BL-2017-005183

PATIENT
  Age: 61 Year
  Sex: Male
  Weight: 85.81 kg

DRUGS (7)
  1. DANAZOL. [Concomitant]
     Active Substance: DANAZOL
     Indication: HEREDITARY ANGIOEDEMA
     Dosage: NIGHTLY
     Route: 048
     Dates: start: 2001
  2. VITAMIN C [Concomitant]
     Active Substance: ASCORBIC ACID
     Indication: SUPPLEMENTATION THERAPY
     Route: 048
     Dates: start: 2016
  3. FIRAZYR [Concomitant]
     Active Substance: ICATIBANT ACETATE
     Dosage: A SHOT OF FIRAZYR
     Dates: start: 201608
  4. FIRAZYR [Concomitant]
     Active Substance: ICATIBANT ACETATE
     Dates: start: 201702
  5. FIRAZYR [Concomitant]
     Active Substance: ICATIBANT ACETATE
     Indication: SWELLING
     Dosage: AS NEEDED
     Dates: start: 2014
  6. RUCONEST [Suspect]
     Active Substance: HUMAN C1-ESTERASE INHIBITOR
     Indication: HEREDITARY ANGIOEDEMA
     Dates: start: 2015
  7. ASPIRIN. [Concomitant]
     Active Substance: ASPIRIN
     Indication: MYOCARDIAL INFARCTION
     Route: 048
     Dates: start: 1997

REACTIONS (4)
  - Limb injury [Recovering/Resolving]
  - Hand fracture [Recovering/Resolving]
  - Fall [Unknown]
  - Swelling [Recovered/Resolved]

NARRATIVE: CASE EVENT DATE: 201608
